FAERS Safety Report 6734959-4 (Version None)
Quarter: 2010Q2

REPORT INFORMATION
  Report Type: 
  Country: None (occurrence: None)
  Receive Date: 20100521
  Receipt Date: 20100510
  Transmission Date: 20101027
  Serious: Yes (Other)
  Sender: FDA-Public Use
  Company Number: JP-PFIZER INC-2010050322

PATIENT
  Sex: Male

DRUGS (1)
  1. DETRUSITOL [Suspect]
     Dosage: UNK
     Route: 048

REACTIONS (2)
  - ILEUS [None]
  - LARGE INTESTINE CARCINOMA [None]
